FAERS Safety Report 4744042-5 (Version None)
Quarter: 2005Q3

REPORT INFORMATION
  Report Type: 
  Country: None (occurrence: None)
  Receive Date: 20050809
  Receipt Date: 20050802
  Transmission Date: 20060218
  Serious: Yes (Hospitalization)
  Sender: FDA-Public Use
  Company Number: US-2005-007402

PATIENT
  Age: 76 Year
  Sex: Female
  Weight: 72.6 kg

DRUGS (14)
  1. BETASERON [Suspect]
     Indication: SECONDARY PROGRESSIVE MULTIPLE SCLEROSIS
     Dosage: 8 MIU, EVERY 2D, SUBCUTANEOUS
     Route: 058
     Dates: start: 19980430
  2. CITRACAL (CALCIUM CITRATE) [Concomitant]
  3. FIBERCON (POLYCARBOPHIL CALCIUM) [Concomitant]
  4. MULTIVITAMINS (PANTHENOL, RETINOL) [Concomitant]
  5. XALATAN [Concomitant]
  6. PRAVACHOL [Concomitant]
  7. FOLTX (PYRIDOXINE) [Concomitant]
  8. PAXIL [Concomitant]
  9. LOPRESSOR [Concomitant]
  10. ISOSORBIDE (ISOSORBIDE) [Concomitant]
  11. LOTREL (BENAZEPRIL HYDROCHLORIDE, AMLODIPINE) [Concomitant]
  12. AMBIEN [Concomitant]
  13. PERMAX [Concomitant]
  14. TOPROL-XL [Concomitant]

REACTIONS (1)
  - NON-SMALL CELL LUNG CANCER [None]
